FAERS Safety Report 19449708 (Version 10)
Quarter: 2022Q1

REPORT INFORMATION
  Report Type: Report from Study
  Country: CN (occurrence: CN)
  Receive Date: 20210622
  Receipt Date: 20220121
  Transmission Date: 20220423
  Serious: Yes (Death, Hospitalization)
  Sender: FDA-Public Use
  Company Number: CN-CELGENE-CHN-20210407127

PATIENT
  Age: 66 Year
  Sex: Male

DRUGS (36)
  1. AZACITIDINE [Suspect]
     Active Substance: AZACITIDINE
     Indication: Myelodysplastic syndrome
     Route: 041
     Dates: start: 20201207
  2. AZACITIDINE [Suspect]
     Active Substance: AZACITIDINE
     Route: 065
     Dates: start: 20210301
  3. PEVONEDISTAT [Suspect]
     Active Substance: PEVONEDISTAT
     Indication: Myelodysplastic syndrome
     Route: 065
     Dates: start: 20201207
  4. PEVONEDISTAT [Suspect]
     Active Substance: PEVONEDISTAT
     Route: 065
     Dates: start: 20201209
  5. HUMAN RED BLOOD CELL [Concomitant]
     Active Substance: HUMAN RED BLOOD CELL
     Indication: Product used for unknown indication
     Dosage: 2 UNITS
     Route: 065
     Dates: start: 20210407, end: 20210407
  6. HUMAN RED BLOOD CELL [Concomitant]
     Active Substance: HUMAN RED BLOOD CELL
     Route: 065
     Dates: start: 20210418, end: 20210418
  7. Cycloadenosine [Concomitant]
     Indication: Pneumonia
     Route: 065
  8. Cycloadenosine [Concomitant]
     Indication: Upper respiratory tract infection
  9. ALBUMIN HUMAN [Concomitant]
     Active Substance: ALBUMIN HUMAN
     Indication: Product used for unknown indication
     Route: 065
  10. FUROSEMIDE [Concomitant]
     Active Substance: FUROSEMIDE
     Indication: Polyuria
     Route: 065
     Dates: start: 20210315, end: 20210416
  11. NITROGLYCERIN [Concomitant]
     Active Substance: NITROGLYCERIN
     Indication: Cardiac failure
     Route: 065
     Dates: start: 20210315, end: 20210315
  12. METOPROLOL TARTRATE [Concomitant]
     Active Substance: METOPROLOL TARTRATE
     Indication: Cardiac failure
     Route: 065
     Dates: start: 20210315, end: 20210315
  13. CEFUROXIME SODIUM [Concomitant]
     Active Substance: CEFUROXIME SODIUM
     Indication: Infection prophylaxis
     Route: 065
     Dates: start: 20210314, end: 20210318
  14. CEFUROXIME SODIUM [Concomitant]
     Active Substance: CEFUROXIME SODIUM
     Indication: Skin infection
  15. INOSINE [Concomitant]
     Active Substance: INOSINE
     Indication: Cardiac failure
     Route: 041
     Dates: start: 20210311, end: 20210313
  16. ADENOSINE [Concomitant]
     Active Substance: ADENOSINE
     Indication: Cardiac failure
     Route: 041
     Dates: start: 20210311, end: 20210318
  17. MOXIFLOXACIN HYDROCHLORIDE [Concomitant]
     Active Substance: MOXIFLOXACIN HYDROCHLORIDE
     Indication: Skin infection
     Route: 041
     Dates: start: 20210315, end: 20210318
  18. MOXIFLOXACIN HYDROCHLORIDE [Concomitant]
     Active Substance: MOXIFLOXACIN HYDROCHLORIDE
     Indication: Upper respiratory tract infection
  19. GRANULOCYTE COLONY-STIMULATING FACTOR NOS [Concomitant]
     Active Substance: GRANULOCYTE COLONY-STIMULATING FACTOR NOS
     Indication: Product used for unknown indication
     Route: 065
     Dates: start: 20210314, end: 20210314
  20. AMINOPHYLLINE [Concomitant]
     Active Substance: AMINOPHYLLINE
     Indication: Product used for unknown indication
     Route: 065
     Dates: start: 20210315, end: 20210410
  21. METHYLPREDNISOLONE SODIUM SUCCINATE [Concomitant]
     Active Substance: METHYLPREDNISOLONE SODIUM SUCCINATE
     Indication: Skin infection
     Route: 065
     Dates: start: 20210315, end: 20210416
  22. METHYLPREDNISOLONE SODIUM SUCCINATE [Concomitant]
     Active Substance: METHYLPREDNISOLONE SODIUM SUCCINATE
     Indication: Upper respiratory tract infection
  23. AMBROXOL HYDROCHLORIDE [Concomitant]
     Active Substance: AMBROXOL HYDROCHLORIDE
     Indication: Skin infection
     Route: 048
     Dates: start: 20210315, end: 20210410
  24. CHLORHEXIDINE GLUCONATE [Concomitant]
     Active Substance: CHLORHEXIDINE GLUCONATE
     Indication: Product used for unknown indication
     Route: 065
     Dates: start: 20210329
  25. SODIUM CHLORIDE [Concomitant]
     Active Substance: SODIUM CHLORIDE
     Indication: Prophylaxis
     Route: 065
  26. SODIUM BICARBONATE [Concomitant]
     Active Substance: SODIUM BICARBONATE
     Indication: Product used for unknown indication
     Route: 065
     Dates: start: 20210329
  27. CEFTAZIDIME [Concomitant]
     Active Substance: CEFTAZIDIME
     Indication: Upper respiratory tract infection
     Route: 065
     Dates: start: 20210407, end: 20210418
  28. DICLOFENAC SODIUM [Concomitant]
     Active Substance: DICLOFENAC SODIUM
     Indication: Local anaesthesia
     Route: 065
     Dates: start: 20210326, end: 20210326
  29. LORATADINE [Concomitant]
     Active Substance: LORATADINE
     Indication: Product used for unknown indication
     Route: 065
     Dates: start: 20210326, end: 20210326
  30. DYPHYLLINE [Concomitant]
     Active Substance: DYPHYLLINE
     Indication: Product used for unknown indication
     Route: 065
     Dates: start: 20210329, end: 20210416
  31. TROPISETRON HYDROCHLORIDE [Concomitant]
     Active Substance: TROPISETRON HYDROCHLORIDE
     Indication: Prophylaxis of nausea and vomiting
     Route: 065
     Dates: start: 20210329, end: 20210402
  32. CHLORPHENIRAMINE MALEATE [Concomitant]
     Active Substance: CHLORPHENIRAMINE MALEATE
     Indication: Product used for unknown indication
     Route: 065
     Dates: start: 20210402, end: 20210402
  33. PROMETHAZINE [Concomitant]
     Active Substance: PROMETHAZINE HYDROCHLORIDE
     Indication: Prophylaxis
     Route: 065
     Dates: start: 20210402, end: 20210402
  34. GRANULOCYTE COLONY-STIMULATING FACTOR NOS [Concomitant]
     Active Substance: GRANULOCYTE COLONY-STIMULATING FACTOR NOS
     Indication: Neutrophil count decreased
     Route: 065
     Dates: start: 20210408, end: 20210408
  35. REBAMIPIDE [Concomitant]
     Active Substance: REBAMIPIDE
     Indication: Chronic gastritis
     Route: 065
     Dates: start: 20210425, end: 20210506
  36. SPIRONOLACTONE [Concomitant]
     Active Substance: SPIRONOLACTONE
     Indication: Cardiac failure
     Route: 065
     Dates: start: 20210409

REACTIONS (2)
  - Pneumonia [Fatal]
  - Upper respiratory tract infection [Not Recovered/Not Resolved]

NARRATIVE: CASE EVENT DATE: 20210410
